FAERS Safety Report 5107500-X (Version None)
Quarter: 2006Q3

REPORT INFORMATION
  Report Type: 
  Country: None (occurrence: None)
  Receive Date: 20060913
  Receipt Date: 20060913
  Transmission Date: 20061208
  Serious: No
  Sender: FDA-Public Use
  Company Number: None

PATIENT
  Age: 44 Year
  Sex: Female
  Weight: 89.3586 kg

DRUGS (1)
  1. GABAPENTIN [Suspect]
     Dosage: 300 MG TID ORAL
     Route: 048

REACTIONS (3)
  - RADICULOPATHY [None]
  - THERAPEUTIC RESPONSE UNEXPECTED WITH DRUG SUBSTITUTION [None]
  - TRIGEMINAL NEURALGIA [None]
